FAERS Safety Report 10636017 (Version 2)
Quarter: 2014Q4

REPORT INFORMATION
  Report Type: Spontaneous
  Country: GB (occurrence: GB)
  Receive Date: 20141205
  Receipt Date: 20141219
  Transmission Date: 20150529
  Serious: Yes (Death, Life-Threatening, Other)
  Sender: FDA-Public Use
  Company Number: PHFR2014GB008407

PATIENT
  Age: 66 Year
  Sex: Male
  Weight: 84 kg

DRUGS (4)
  1. CLOZARIL [Suspect]
     Active Substance: CLOZAPINE
     Indication: SCHIZOPHRENIA
     Dosage: UNK
     Route: 048
     Dates: start: 20031103
  2. SODIUM VALPROATE [Concomitant]
     Active Substance: VALPROATE SODIUM
     Indication: SCHIZOPHRENIA
     Dosage: 1200 MG, UNK
     Route: 048
  3. CLOZARIL [Suspect]
     Active Substance: CLOZAPINE
     Indication: SCHIZOPHRENIA, PARANOID TYPE
     Dosage: 700 MG, QD
     Route: 048
  4. SODIUM VALPROATE [Concomitant]
     Active Substance: VALPROATE SODIUM
     Indication: ANTISOCIAL PERSONALITY DISORDER

REACTIONS (2)
  - Death [Fatal]
  - Eosinophil count increased [Unknown]

NARRATIVE: CASE EVENT DATE: 20141110
